FAERS Safety Report 18014131 (Version 1)
Quarter: 2020Q3

REPORT INFORMATION
  Report Type: Spontaneous
  Country: US (occurrence: US)
  Receive Date: 20200713
  Receipt Date: 20200713
  Transmission Date: 20201103
  Serious: No
  Sender: FDA-Public Use
  Company Number: US-ELI_LILLY_AND_COMPANY-US202007004426

PATIENT

DRUGS (3)
  1. REYVOW [Suspect]
     Active Substance: LASMIDITAN
     Indication: MIGRAINE
     Dosage: 50 MG, OTHER
     Route: 065
  2. REYVOW [Suspect]
     Active Substance: LASMIDITAN
     Dosage: 100 UNK
     Route: 065
  3. REYVOW [Suspect]
     Active Substance: LASMIDITAN
     Dosage: 200 UNK
     Route: 065

REACTIONS (1)
  - Sedation [Recovered/Resolved]
